FAERS Safety Report 15257401 (Version 1)
Quarter: 2018Q3

REPORT INFORMATION
  Report Type: Spontaneous
  Country: US (occurrence: US)
  Receive Date: 20180808
  Receipt Date: 20180808
  Transmission Date: 20181010
  Serious: No
  Sender: FDA-Public Use
  Company Number: US-VIFOR (INTERNATIONAL) INC.-VIT-2018-07751

PATIENT
  Sex: Male

DRUGS (14)
  1. ATORVASTATIN CALCIUM. [Concomitant]
     Active Substance: ATORVASTATIN CALCIUM
  2. VELTASSA [Suspect]
     Active Substance: PATIROMER
     Indication: HYPERKALAEMIA
     Route: 048
     Dates: start: 20160429
  3. LEVOTHYROXINE SODIUM. [Concomitant]
     Active Substance: LEVOTHYROXINE SODIUM
  4. AMLODIPINE BESILATE [Concomitant]
     Active Substance: AMLODIPINE BESYLATE
  5. CLONIDINE HYDROCHLORIDE. [Concomitant]
     Active Substance: CLONIDINE HYDROCHLORIDE
  6. CYANOCOBALAMIN. [Concomitant]
     Active Substance: CYANOCOBALAMIN
  7. INSULIN [Concomitant]
     Active Substance: INSULIN NOS
  8. FISH OIL [Concomitant]
     Active Substance: FISH OIL
  9. ERGOCALCIFEROL. [Concomitant]
     Active Substance: ERGOCALCIFEROL
  10. VITAMINS NOS [Concomitant]
     Active Substance: VITAMINS
  11. FUROSEMIDE. [Concomitant]
     Active Substance: FUROSEMIDE
  12. COLECALCIFEROL~~CALCIUM CARBONATE [Concomitant]
  13. BENAZEPRIL HYDROCHLORIDE~~AMLODIPINE BESILATE [Concomitant]
  14. ESCITALOPRAM OXALATE. [Concomitant]
     Active Substance: ESCITALOPRAM OXALATE

REACTIONS (1)
  - Constipation [Unknown]
